FAERS Safety Report 9966948 (Version 1)
Quarter: 2014Q1

REPORT INFORMATION
  Report Type: Other
  Country: US (occurrence: US)
  Receive Date: 20140305
  Receipt Date: 20140305
  Transmission Date: 20141002
  Serious: Yes (Death)
  Sender: FDA-Public Use
  Company Number: US-FRI-1000054796

PATIENT
  Age: 42 Year
  Sex: Male

DRUGS (9)
  1. CITALOPRAM [Suspect]
  2. CARBON MONOXIDE [Suspect]
  3. SMOKE [Suspect]
  4. COCAINE [Suspect]
  5. PHENOBARBITAL [Suspect]
  6. QUETIAPINE [Suspect]
  7. PHENYTOIN [Suspect]
  8. MIRTAZAPINE [Suspect]
  9. ETHANOL [Suspect]

REACTIONS (1)
  - Death [Fatal]
